FAERS Safety Report 4500263-8 (Version None)
Quarter: 2004Q4

REPORT INFORMATION
  Report Type: 
  Country: None (occurrence: None)
  Receive Date: 20041109
  Receipt Date: 20041027
  Transmission Date: 20050328
  Serious: Yes (Other)
  Sender: FDA-Public Use
  Company Number: 2004241843US

PATIENT
  Age: 55 Year
  Sex: Male
  Weight: 90.7 kg

DRUGS (1)
  1. CELEBREX [Suspect]
     Dosage: 200 MG, QD, ORAL
     Route: 048

REACTIONS (6)
  - BLOOD PRESSURE INCREASED [None]
  - NEPHROLITHIASIS [None]
  - PAIN [None]
  - PAIN IN EXTREMITY [None]
  - PYREXIA [None]
  - TREATMENT NONCOMPLIANCE [None]
